FAERS Safety Report 13034904 (Version 1)
Quarter: 2016Q4

REPORT INFORMATION
  Report Type: Report from Study
  Country: CA (occurrence: CA)
  Receive Date: 20161216
  Receipt Date: 20161216
  Transmission Date: 20170207
  Serious: Yes (Hospitalization)
  Sender: FDA-Public Use
  Company Number: CA-AMGEN-CANSL2016176488

PATIENT
  Sex: Female

DRUGS (12)
  1. VITAMIN D3 [Concomitant]
     Active Substance: CHOLECALCIFEROL
     Dosage: 1 UNK, UNK
  2. VITAMIN B12 [Concomitant]
     Active Substance: CYANOCOBALAMIN
     Dosage: UNK UNK, QMO
  3. CANDESARTAN [Concomitant]
     Active Substance: CANDESARTAN
     Dosage: 2 MG, UNK
  4. TYLENOL [Concomitant]
     Active Substance: ACETAMINOPHEN
     Dosage: UNK UNK, AS NECESSARY
  5. TRAMADOL + ACETAMINOFEN [Concomitant]
     Active Substance: ACETAMINOPHEN\TRAMADOL
     Dosage: 325 MG, UNK, HALF TABLET
  6. IRON [Concomitant]
     Active Substance: IRON
  7. PROLIA [Suspect]
     Active Substance: DENOSUMAB
     Indication: PRODUCT USED FOR UNKNOWN INDICATION
     Dosage: UNK UNK, Q6MO
     Route: 065
     Dates: start: 2014
  8. DONEPEZIL. [Concomitant]
     Active Substance: DONEPEZIL
     Dosage: 10 MG, UNK
  9. ADVIL [Concomitant]
     Active Substance: IBUPROFEN
     Dosage: UNK UNK, AS NECESSARY
  10. LEVOTHYROXINE. [Concomitant]
     Active Substance: LEVOTHYROXINE
     Dosage: 0.125 MG, UNK
  11. ASA EC [Concomitant]
     Active Substance: ASPIRIN
     Dosage: 81 MG, UNK
  12. ATORVASTATIN [Concomitant]
     Active Substance: ATORVASTATIN
     Dosage: 10 MG, UNK

REACTIONS (3)
  - Drug dose omission [Unknown]
  - Hypotension [Recovered/Resolved]
  - Asthenia [Recovered/Resolved]

NARRATIVE: CASE EVENT DATE: 201611
